FAERS Safety Report 6906360-1 (Version None)
Quarter: 2010Q3

REPORT INFORMATION
  Report Type: 
  Country: None (occurrence: None)
  Receive Date: 20100804
  Receipt Date: 20100729
  Transmission Date: 20110219
  Serious: Yes (Hospitalization)
  Sender: FDA-Public Use
  Company Number: A0865567A

PATIENT
  Sex: Female

DRUGS (1)
  1. TYKERB [Suspect]
     Dosage: 1250MG PER DAY
     Route: 048
     Dates: start: 20090717, end: 20100601

REACTIONS (3)
  - BRAIN CANCER METASTATIC [None]
  - MALIGNANT NEOPLASM PROGRESSION [None]
  - RASH [None]
